FAERS Safety Report 24872019 (Version 3)
Quarter: 2025Q2

REPORT INFORMATION
  Report Type: Spontaneous
  Country: FR (occurrence: FR)
  Receive Date: 20250122
  Receipt Date: 20250418
  Transmission Date: 20250717
  Serious: Yes (Other)
  Sender: ALEXION PHARMACEUTICALS
  Company Number: FR-ASTRAZENECA-202501EEA015148FR

PATIENT
  Weight: 54 kg

DRUGS (9)
  1. ULTOMIRIS [Suspect]
     Active Substance: RAVULIZUMAB-CWVZ
     Indication: Atypical haemolytic uraemic syndrome
     Dosage: 3000 MILLIGRAM, Q8W
  2. PROGRAF [Concomitant]
     Active Substance: TACROLIMUS
     Route: 065
  3. Imurel [Concomitant]
     Route: 065
  4. Solupred [Concomitant]
     Route: 065
  5. NIFEDIPINE [Concomitant]
     Active Substance: NIFEDIPINE
     Route: 065
  6. KARDEGIC [Concomitant]
     Active Substance: ASPIRIN DL-LYSINE
     Route: 065
  7. Oracillin [Concomitant]
     Dosage: 1 MILLION INTERNATIONAL UNIT, BID
     Route: 065
  8. SODIUM BICARBONATE [Concomitant]
     Active Substance: SODIUM BICARBONATE
     Dosage: 500 MILLIGRAM, TID
     Route: 065
  9. DESOGESTREL [Concomitant]
     Active Substance: DESOGESTREL
     Dosage: 1 CAPSULE EVERY DAY OF THE MONTH
     Route: 065

REACTIONS (1)
  - Haptoglobin decreased [Recovered/Resolved]
